FAERS Safety Report 10257995 (Version 3)
Quarter: 2014Q3

REPORT INFORMATION
  Report Type: Spontaneous
  Country: US (occurrence: None)
  Receive Date: 20140623
  Receipt Date: 20140811
  Transmission Date: 20150326
  Serious: Yes (Hospitalization)
  Sender: FDA-Public Use
  Company Number: UNT-2014-000641

PATIENT
  Age: 43 Year
  Sex: Female
  Weight: 67.6 kg

DRUGS (11)
  1. REMODULIN [Suspect]
     Active Substance: TREPROSTINIL
     Indication: SCLERODERMA
     Dosage: 0.052 UG/KG, CONTINUING, SUBCUTANEOUS?
     Route: 058
     Dates: start: 20130611
  2. REMODULIN [Suspect]
     Active Substance: TREPROSTINIL
     Indication: COR PULMONALE CHRONIC
     Dosage: 0.052 UG/KG, CONTINUING, SUBCUTANEOUS?
     Route: 058
     Dates: start: 20130611
  3. NEPHRO-VITE  /01801401/ (ASCORBIC ACID, BIOTIN, CYANOCOBALMIN, FOLIC ACID, NICOTINAMIDE, PANTHOTHENIC ACID, PYRIDOXINE HYDROCHLORIDE, RIBOFLAVIN, THIAMINE HYDORHCLORIDE) [Concomitant]
  4. SILDENAFIL (SILDENAFIL) [Concomitant]
     Active Substance: SILDENAFIL
  5. LEVOXYL (LEVOTHYROXINE SODIUM) [Concomitant]
  6. EPOGEN [Concomitant]
     Active Substance: ERYTHROPOIETIN
  7. ASCORBIC ACID (ASCORBIC ACID) [Concomitant]
  8. PROAMATINE (MIDODRINE HYDROCHLORIDE) [Concomitant]
  9. ZOFRAN /00955301/  (ONDANSETRON) [Concomitant]
  10. REMODULIN [Suspect]
     Active Substance: TREPROSTINIL
     Indication: PULMONARY ARTERIAL HYPERTENSION
     Dosage: 0.052 UG/KG, CONTINUING, SUBCUTANEOUS?
     Route: 058
     Dates: start: 20130611
  11. TRACLEER /01587701/ (BOSENTAN) [Concomitant]

REACTIONS (6)
  - Fluid overload [None]
  - Renal failure chronic [None]
  - Cardiac failure congestive [None]
  - Dialysis [None]
  - Right ventricular dysfunction [None]
  - Pleural effusion [None]

NARRATIVE: CASE EVENT DATE: 20140512
